FAERS Safety Report 4761509-4 (Version None)
Quarter: 2005Q3

REPORT INFORMATION
  Report Type: 
  Country: None (occurrence: None)
  Receive Date: 20050906
  Receipt Date: 20050830
  Transmission Date: 20060218
  Serious: Yes (Life-Threatening)
  Sender: FDA-Public Use
  Company Number: FR-GLAXOSMITHKLINE-B0392092A

PATIENT
  Age: 51 Year
  Sex: Male

DRUGS (8)
  1. AUGMENTIN '125' [Suspect]
     Dosage: 2G SINGLE DOSE
     Route: 042
     Dates: start: 20050520, end: 20050520
  2. NIMBEX [Concomitant]
     Dosage: 1UNIT SINGLE DOSE
     Route: 042
     Dates: start: 20050520, end: 20050520
  3. MIDAZOLAM HCL [Concomitant]
     Dosage: 1UNIT SINGLE DOSE
     Route: 042
     Dates: start: 20050520, end: 20050520
  4. DIPRIVAN [Concomitant]
     Dosage: 1UNIT SINGLE DOSE
     Route: 042
     Dates: start: 20050520, end: 20050520
  5. SUFENTA [Concomitant]
     Dosage: 1UNIT SINGLE DOSE
     Route: 042
     Dates: start: 20050520, end: 20050520
  6. ASPEGIC 325 [Concomitant]
     Route: 065
     Dates: start: 20040701
  7. PRAVASTATIN [Concomitant]
     Route: 065
     Dates: start: 20040701
  8. COVERSYL [Concomitant]
     Route: 065
     Dates: start: 20040701

REACTIONS (3)
  - ANAPHYLACTIC SHOCK [None]
  - BLOOD PRESSURE SYSTOLIC DECREASED [None]
  - CARDIAC ARREST [None]
